FAERS Safety Report 11445064 (Version 1)
Quarter: 2015Q3

REPORT INFORMATION
  Report Type: Spontaneous
  Country: US (occurrence: None)
  Receive Date: 20150901
  Receipt Date: 20150901
  Transmission Date: 20151125
  Serious: Yes (Hospitalization)
  Sender: FDA-Public Use
  Company Number: None

PATIENT
  Age: 69 Year
  Sex: Male
  Weight: 106.5 kg

DRUGS (1)
  1. SULFAMETHIZOLE/TRIMETHOPRIM [Suspect]
     Active Substance: SULFAMETHOXAZOLE\TRIMETHOPRIM
     Indication: INFECTION
     Dosage: 1 TAB  BID
     Dates: start: 20150528, end: 20150606

REACTIONS (3)
  - Rash [None]
  - Stevens-Johnson syndrome [None]
  - Acute kidney injury [None]

NARRATIVE: CASE EVENT DATE: 20150611
